FAERS Safety Report 13886421 (Version 1)
Quarter: 2017Q3

REPORT INFORMATION
  Report Type: Spontaneous
  Country: US (occurrence: US)
  Receive Date: 20170821
  Receipt Date: 20170821
  Transmission Date: 20171127
  Serious: No
  Sender: FDA-Public Use
  Company Number: US-ALLERGAN-1719610US

PATIENT
  Age: 73 Year
  Sex: Male

DRUGS (4)
  1. ANDRODERM [Suspect]
     Active Substance: TESTOSTERONE
     Indication: ANDROGEN REPLACEMENT THERAPY
     Dosage: 4 MG PATCH
     Route: 062
     Dates: start: 20170510, end: 20170530
  2. HYDROCHLOROTHIAZIDE. [Concomitant]
     Active Substance: HYDROCHLOROTHIAZIDE
     Dosage: UNK
  3. WELLBUTRIN SR [Concomitant]
     Active Substance: BUPROPION HYDROCHLORIDE
     Dosage: UNK
  4. FLUOROMETHOLONE. [Concomitant]
     Active Substance: FLUOROMETHOLONE
     Dosage: UNK

REACTIONS (8)
  - Application site wound [Unknown]
  - Application site rash [Not Recovered/Not Resolved]
  - Application site irritation [Unknown]
  - Application site pain [Unknown]
  - Drug ineffective [Unknown]
  - Application site pruritus [Unknown]
  - Application site erythema [Unknown]
  - Application site vesicles [Not Recovered/Not Resolved]

NARRATIVE: CASE EVENT DATE: 201705
